FAERS Safety Report 5162898-1 (Version None)
Quarter: 2006Q4

REPORT INFORMATION
  Report Type: 
  Country: None (occurrence: None)
  Receive Date: 20061201
  Receipt Date: 20060801
  Transmission Date: 20070319
  Serious: Yes (Other)
  Sender: FDA-Public Use
  Company Number: FR-ROCHE-458568

PATIENT
  Age: 39 Year
  Sex: Male

DRUGS (6)
  1. PEGASYS [Suspect]
     Indication: HEPATITIS C
     Route: 065
     Dates: start: 20050215, end: 20060215
  2. PEGASYS [Suspect]
     Route: 065
     Dates: start: 19910915, end: 19920315
  3. PEGASYS [Suspect]
     Route: 065
     Dates: start: 19930715, end: 19941215
  4. PEGASYS [Suspect]
     Route: 065
     Dates: start: 19980415, end: 19990315
  5. RIBAVIRIN [Suspect]
     Indication: HEPATITIS C
     Dosage: DRUG REPORTED AS ^RIBAVIRINE^.
     Route: 065
     Dates: start: 20050215, end: 20060215
  6. RIBAVIRIN [Suspect]
     Route: 065
     Dates: start: 19980415, end: 19990315

REACTIONS (2)
  - ASTHMA [None]
  - PHLEBITIS [None]
